FAERS Safety Report 25074365 (Version 2)
Quarter: 2025Q2

REPORT INFORMATION
  Report Type: Spontaneous
  Country: IL (occurrence: IL)
  Receive Date: 20250313
  Receipt Date: 20250425
  Transmission Date: 20250717
  Serious: Yes (Hospitalization, Other)
  Sender: CELLTRION
  Company Number: IL-CELLTRION INC.-2025IL007753

PATIENT

DRUGS (21)
  1. RITUXIMAB [Suspect]
     Active Substance: RITUXIMAB
     Indication: Follicular lymphoma
     Dosage: 670 MG DURING CYCLE 1-6 (ON DAY 1) (28-DAY CYCLES), EVERY 4 WEEK
     Route: 042
     Dates: start: 20241119, end: 20250114
  2. RITUXIMAB [Suspect]
     Active Substance: RITUXIMAB
     Dosage: 670 MG DURING CYCLE 1-6 (ON DAY 1) (28-DAY CYCLES), EVERY 4 WEEK
     Route: 042
     Dates: start: 20250218
  3. BENDAMUSTINE [Suspect]
     Active Substance: BENDAMUSTINE
     Indication: Follicular lymphoma
     Dosage: 160 MG ON DAY 1 AND 2 (28-DAY CYCLES), EVERY 4 WEEKS
     Route: 042
     Dates: start: 20241119, end: 20250115
  4. BENDAMUSTINE [Suspect]
     Active Substance: BENDAMUSTINE
     Dosage: 160 MG ON DAY 1 AND 2 (28-DAY CYCLES), EVERY 4 WEEKS
     Route: 042
     Dates: start: 20250218
  5. ROSUVASTATIN CALCIUM [Concomitant]
     Active Substance: ROSUVASTATIN CALCIUM
     Indication: Dyslipidaemia
     Dates: start: 20181104
  6. ROSUVASTATIN CALCIUM [Concomitant]
     Active Substance: ROSUVASTATIN CALCIUM
     Indication: Bundle branch block left
  7. JANUMET [Concomitant]
     Active Substance: METFORMIN HYDROCHLORIDE\SITAGLIPTIN PHOSPHATE
     Indication: Diabetes mellitus
     Dates: start: 20210110
  8. ASPIRIN [Concomitant]
     Active Substance: ASPIRIN
     Indication: Cerebrovascular accident
     Dates: start: 20160517
  9. AMLODIPINE [Concomitant]
     Active Substance: AMLODIPINE BESYLATE
     Indication: Hypertension
     Dates: start: 20240321
  10. AMLODIPINE [Concomitant]
     Active Substance: AMLODIPINE BESYLATE
     Indication: Blood pressure measurement
     Dates: start: 202411
  11. ACYCLO V [Concomitant]
     Indication: Antiviral prophylaxis
     Dates: start: 202411
  12. AKYNZEO (NETUPITANT\PALONOSETRON HYDROCHLORIDE) [Concomitant]
     Active Substance: NETUPITANT\PALONOSETRON HYDROCHLORIDE
     Indication: Product used for unknown indication
     Dosage: 0.5/300 MG, EVERY 4 WEEKS
     Dates: start: 202411
  13. ALLOPURINOL [Concomitant]
     Active Substance: ALLOPURINOL
     Indication: Urine uric acid increased
     Dates: start: 202411
  14. AMLODIPINE [Concomitant]
     Active Substance: AMLODIPINE BESYLATE
     Indication: Blood pressure measurement
     Dates: start: 202411
  15. FULPHILA [Concomitant]
     Active Substance: PEGFILGRASTIM-JMDB
     Indication: Product used for unknown indication
     Dosage: 6 MG 29/M PREFILLED SRG, EVERY 4 WEEKS
     Dates: start: 202411
  16. NEXIUM I.V. [Concomitant]
     Active Substance: ESOMEPRAZOLE SODIUM
     Indication: Gastrointestinal disorder prophylaxis
     Dates: start: 202411
  17. TENOFOVIR [Concomitant]
     Active Substance: TENOFOVIR
     Indication: Antiviral prophylaxis
     Dates: start: 202411
  18. LOSARDEX PLUS [Concomitant]
     Indication: Blood pressure measurement
     Dates: start: 202411
  19. ACETAMINOPHEN [Concomitant]
     Active Substance: ACETAMINOPHEN
     Indication: Premedication
     Dates: start: 20241119
  20. PALONOSETRON [Concomitant]
     Active Substance: PALONOSETRON
     Indication: Premedication
     Dates: start: 20241119
  21. METHYLPREDNISOLONE SODIUM SUCCINATE [Concomitant]
     Active Substance: METHYLPREDNISOLONE SODIUM SUCCINATE
     Indication: Premedication
     Dates: start: 20241119

REACTIONS (3)
  - Pneumonia [Recovered/Resolved]
  - Rash [Recovered/Resolved]
  - Intentional product use issue [Unknown]

NARRATIVE: CASE EVENT DATE: 20250209
